FAERS Safety Report 6099941-1 (Version None)
Quarter: 2009Q1

REPORT INFORMATION
  Report Type: 
  Country: None (occurrence: None)
  Receive Date: 20090227
  Receipt Date: 20090227
  Transmission Date: 20090719
  Serious: Yes (Other)
  Sender: FDA-Public Use
  Company Number: None

PATIENT
  Age: 57 Year
  Sex: Male
  Weight: 93.441 kg

DRUGS (2)
  1. LISINOPRIL [Suspect]
     Indication: HYPERTENSION
     Dosage: ONCE PO QD
     Route: 048
     Dates: start: 20090106, end: 20090112
  2. ENALAPRIL [Suspect]
     Dosage: ONCE PO QD
     Route: 048
     Dates: start: 20090112, end: 20090225

REACTIONS (5)
  - CHOKING SENSATION [None]
  - COUGH [None]
  - NAUSEA [None]
  - PRURITUS [None]
  - THROAT TIGHTNESS [None]
